FAERS Safety Report 5777079-8 (Version None)
Quarter: 2008Q2

REPORT INFORMATION
  Report Type: 
  Country: None (occurrence: None)
  Receive Date: 20080617
  Receipt Date: 20080617
  Transmission Date: 20081010
  Serious: Yes (Life-Threatening)
  Sender: FDA-Public Use
  Company Number: None

PATIENT
  Sex: Male
  Weight: 50.3 kg

DRUGS (17)
  1. ETOPOSIDE [Suspect]
     Indication: DIFFUSE LARGE B-CELL LYMPHOMA
     Dosage: 100MG DAILY ONCE IV
     Route: 042
     Dates: start: 20080422
  2. ETOPOSIDE [Suspect]
     Indication: DIFFUSE LARGE B-CELL LYMPHOMA
     Dosage: 100MG DAILY ONCE IV
     Route: 042
     Dates: start: 20080423
  3. ALLOPURINOL [Concomitant]
  4. ATORVASTATIN [Concomitant]
  5. CEFEPIME [Concomitant]
  6. DIGOXIN [Concomitant]
  7. DIPHENHYDRAMINE HCL [Concomitant]
  8. HYDRALAZINE HCL [Concomitant]
  9. HYDROXYZINE [Concomitant]
  10. INSULIN ASPART/GLARGINE [Concomitant]
  11. ISDN [Concomitant]
  12. LANSOPRAZOLE [Concomitant]
  13. LORAZEPAM [Concomitant]
  14. METOPROLOL [Concomitant]
  15. ONDANSETRON [Concomitant]
  16. PREDNISONE [Concomitant]
  17. CYCLOPHOSPHAMIDE [Concomitant]

REACTIONS (1)
  - HEART RATE DECREASED [None]
